FAERS Safety Report 12713203 (Version 4)
Quarter: 2019Q4

REPORT INFORMATION
  Report Type: Spontaneous
  Country: ES (occurrence: ES)
  Receive Date: 20160902
  Receipt Date: 20191021
  Transmission Date: 20200122
  Serious: Yes (Other)
  Sender: FDA-Public Use
  Company Number: ES-TEVA-688916ISR

PATIENT
  Age: 33 Year
  Sex: Female

DRUGS (3)
  1. DOXORUBICIN [Suspect]
     Active Substance: DOXORUBICIN
     Indication: INTRADUCTAL PROLIFERATIVE BREAST LESION
     Dosage: AT DAYS 1-3; 2 CYCLES.
     Route: 042
  2. PACLITAXEL. [Suspect]
     Active Substance: PACLITAXEL
     Indication: INTRADUCTAL PROLIFERATIVE BREAST LESION
     Route: 042
  3. ONDANSETRON [Concomitant]
     Active Substance: ONDANSETRON
     Indication: ANTIEMETIC SUPPORTIVE CARE
     Route: 042

REACTIONS (10)
  - Mucosal inflammation [Recovered/Resolved]
  - Anaemia [Unknown]
  - Respiratory tract infection [Unknown]
  - Asthenia [Recovered/Resolved]
  - Pyrexia [Unknown]
  - Neutropenia [Unknown]
  - Normal newborn [Unknown]
  - Fatigue [Unknown]
  - Maternal exposure during pregnancy [Unknown]
  - Abdominal discomfort [Recovered/Resolved]
